FAERS Safety Report 8858530 (Version 2)
Quarter: 2013Q1

REPORT INFORMATION
  Report Type: Report from Study
  Country: US (occurrence: US)
  Receive Date: 20121024
  Receipt Date: 20130213
  Transmission Date: 20140127
  Serious: Yes (Hospitalization, Other)
  Sender: FDA-Public Use
  Company Number: US-ROCHE-1147907

PATIENT
  Age: 89 None
  Sex: Female
  Weight: 56.75 kg

DRUGS (4)
  1. ZELBORAF [Suspect]
     Indication: METASTATIC MALIGNANT MELANOMA
     Route: 048
     Dates: start: 20120315, end: 20120903
  2. ZELBORAF [Suspect]
     Route: 048
     Dates: start: 20120903, end: 20120910
  3. ZELBORAF [Suspect]
     Route: 048
     Dates: start: 201201, end: 201209
  4. ZELBORAF [Suspect]
     Dosage: 60 MG- 1/4 PILL A DAY
     Route: 048
     Dates: start: 20130118

REACTIONS (9)
  - Rash [Recovered/Resolved]
  - Pain [Not Recovered/Not Resolved]
  - Melanoma recurrent [Not Recovered/Not Resolved]
  - Oropharyngeal pain [Not Recovered/Not Resolved]
  - Blood urine [Recovered/Resolved]
  - Fatigue [Not Recovered/Not Resolved]
  - Bladder cancer [Not Recovered/Not Resolved]
  - Rash generalised [Not Recovered/Not Resolved]
  - Pain [Not Recovered/Not Resolved]
